FAERS Safety Report 18541775 (Version 2)
Quarter: 2021Q1

REPORT INFORMATION
  Report Type: Spontaneous
  Country: US (occurrence: US)
  Receive Date: 20201124
  Receipt Date: 20210121
  Transmission Date: 20210419
  Serious: Yes (Death, Life-Threatening, Hospitalization)
  Sender: FDA-Public Use
  Company Number: US-TEVA-2020-US-1848935

PATIENT
  Age: 54 Year
  Sex: Male

DRUGS (17)
  1. VASOPRESSIN. [Suspect]
     Active Substance: VASOPRESSIN
     Indication: CARDIAC ARREST
  2. NOREPINEPHRINE. [Suspect]
     Active Substance: NOREPINEPHRINE
     Indication: VENTRICULAR FIBRILLATION
     Route: 042
  3. VASOPRESSIN. [Suspect]
     Active Substance: VASOPRESSIN
     Indication: VENTRICULAR FIBRILLATION
     Route: 042
  4. INSULIN [Suspect]
     Active Substance: INSULIN NOS
     Indication: EVIDENCE BASED TREATMENT
     Route: 042
  5. NALOXONE [Concomitant]
     Active Substance: NALOXONE
     Indication: CARDIAC ARREST
  6. NOREPINEPHRINE. [Suspect]
     Active Substance: NOREPINEPHRINE
     Indication: CARDIAC ARREST
  7. ASPIRIN. [Concomitant]
     Active Substance: ASPIRIN
     Indication: PRODUCT USED FOR UNKNOWN INDICATION
     Route: 054
  8. EPINEPHRINE. [Suspect]
     Active Substance: EPINEPHRINE
     Indication: CARDIAC ARREST
     Route: 041
  9. CALCIUM?CHLORIDE [Suspect]
     Active Substance: CALCIUM CHLORIDE
     Indication: EVIDENCE BASED TREATMENT
     Route: 042
  10. ROCURONIUM [Concomitant]
     Active Substance: ROCURONIUM BROMIDE
     Indication: ENDOTRACHEAL INTUBATION
     Route: 042
  11. AMIODARONE [Concomitant]
     Active Substance: AMIODARONE
     Indication: VENTRICULAR FIBRILLATION
     Route: 042
  12. AMIODARONE [Concomitant]
     Active Substance: AMIODARONE
     Indication: CARDIAC ARREST
  13. SODIUM?BICARBONATE [Concomitant]
     Active Substance: SODIUM BICARBONATE
     Indication: EVIDENCE BASED TREATMENT
     Route: 042
  14. KETAMINE [Concomitant]
     Active Substance: KETAMINE
     Indication: ENDOTRACHEAL INTUBATION
     Route: 042
  15. EPINEPHRINE. [Suspect]
     Active Substance: EPINEPHRINE
     Indication: VENTRICULAR FIBRILLATION
     Route: 040
  16. DEXTROSE. [Suspect]
     Active Substance: DEXTROSE
     Indication: EVIDENCE BASED TREATMENT
     Route: 042
  17. NALOXONE [Concomitant]
     Active Substance: NALOXONE
     Indication: VENTRICULAR FIBRILLATION
     Route: 042

REACTIONS (8)
  - Hypokalaemia [Unknown]
  - Rhabdomyolysis [Unknown]
  - Hypertension [Unknown]
  - Metabolic alkalosis [Unknown]
  - Renal failure [Unknown]
  - Arrhythmia [Fatal]
  - Hypercalcaemia [Recovered/Resolved]
  - Anuria [Unknown]
